FAERS Safety Report 17230474 (Version 2)
Quarter: 2020Q1

REPORT INFORMATION
  Report Type: Spontaneous
  Country: PL (occurrence: PL)
  Receive Date: 20200103
  Receipt Date: 20200123
  Transmission Date: 20200409
  Serious: Yes (Death, Other)
  Sender: FDA-Public Use
  Company Number: PL-RECORDATI RARE DISEASES INC.-PL-R13005-19-00361

PATIENT
  Sex: Male

DRUGS (8)
  1. VINCRISTINE [Suspect]
     Active Substance: VINCRISTINE
     Indication: FIBROMATOSIS
  2. VINCRISTINE [Suspect]
     Active Substance: VINCRISTINE
     Indication: DESMOID TUMOUR
     Route: 065
  3. ENDOXAN [Suspect]
     Active Substance: CYCLOPHOSPHAMIDE
     Indication: DESMOID TUMOUR
     Route: 065
  4. ENDOXAN [Suspect]
     Active Substance: CYCLOPHOSPHAMIDE
     Indication: FIBROMATOSIS
  5. DACTINOMYCIN [Suspect]
     Active Substance: DACTINOMYCIN
     Indication: DESMOID TUMOUR
     Dosage: THREE I3VA COURSES
     Route: 065
  6. DACTINOMYCIN [Suspect]
     Active Substance: DACTINOMYCIN
     Indication: FIBROMATOSIS
  7. HOLOXAN [Suspect]
     Active Substance: IFOSFAMIDE
     Indication: FIBROMATOSIS
  8. HOLOXAN [Suspect]
     Active Substance: IFOSFAMIDE
     Indication: DESMOID TUMOUR
     Route: 065

REACTIONS (6)
  - Hepatosplenomegaly [Unknown]
  - Multiple-drug resistance [Unknown]
  - Fibromatosis [Fatal]
  - Disease progression [Fatal]
  - Desmoid tumour [Fatal]
  - Drug ineffective for unapproved indication [Unknown]
